FAERS Safety Report 11403365 (Version 1)
Quarter: 2015Q3

REPORT INFORMATION
  Report Type: Spontaneous
  Country: US (occurrence: US)
  Receive Date: 20150821
  Receipt Date: 20150821
  Transmission Date: 20151125
  Serious: No
  Sender: FDA-Public Use
  Company Number: US-TEVA-560060USA

PATIENT
  Age: 64 Year
  Sex: Female
  Weight: 59.02 kg

DRUGS (1)
  1. CLONIDINE. [Suspect]
     Active Substance: CLONIDINE
     Indication: HYPERTENSION
     Dosage: .01 MILLIGRAM DAILY;
     Route: 062
     Dates: start: 201411

REACTIONS (6)
  - Application site pruritus [Recovered/Resolved]
  - Application site discolouration [Unknown]
  - Application site rash [Recovering/Resolving]
  - Application site pain [Recovered/Resolved]
  - Application site papules [Recovered/Resolved]
  - Application site erythema [Recovered/Resolved]

NARRATIVE: CASE EVENT DATE: 20150420
